FAERS Safety Report 21812145 (Version 1)
Quarter: 2023Q1

REPORT INFORMATION
  Report Type: Spontaneous
  Country: JP (occurrence: JP)
  Receive Date: 20230103
  Receipt Date: 20230103
  Transmission Date: 20230418
  Serious: Yes (Other)
  Sender: FDA-Public Use
  Company Number: JP-PFIZER INC-202200821123

PATIENT
  Age: 63 Year
  Sex: Male
  Weight: 55 kg

DRUGS (14)
  1. BESPONSA [Suspect]
     Active Substance: INOTUZUMAB OZOGAMICIN
     Indication: Acute lymphocytic leukaemia recurrent
     Dosage: 0.8 MG/M2, 1X/DAY, CYCLE 1
     Route: 041
     Dates: start: 20220428, end: 20220428
  2. BESPONSA [Suspect]
     Active Substance: INOTUZUMAB OZOGAMICIN
     Dosage: 0.5 MG/M2, 1X/DAY, CYCLE 1
     Route: 041
     Dates: start: 20220506, end: 20220506
  3. BESPONSA [Suspect]
     Active Substance: INOTUZUMAB OZOGAMICIN
     Dosage: 0.5 MG/M2, 1X/DAY, CYCLE 1
     Route: 041
     Dates: start: 20220513, end: 20220513
  4. BESPONSA [Suspect]
     Active Substance: INOTUZUMAB OZOGAMICIN
     Dosage: 0.5 MG/M2, 1X/DAY, CYCLE 2
     Route: 041
     Dates: start: 20220606, end: 20220606
  5. BESPONSA [Suspect]
     Active Substance: INOTUZUMAB OZOGAMICIN
     Dosage: 0.5 MG/M2, 1X/DAY, CYCLE 2
     Route: 041
     Dates: start: 20220613, end: 20220613
  6. BESPONSA [Suspect]
     Active Substance: INOTUZUMAB OZOGAMICIN
     Dosage: 0.5 MG/M2, 1X/DAY, CYCLE 2
     Route: 041
     Dates: start: 20220620, end: 20220620
  7. BESPONSA [Suspect]
     Active Substance: INOTUZUMAB OZOGAMICIN
     Dosage: 0.5 MG/M2, 1X/DAY, CYCLE 3
     Route: 041
     Dates: start: 20220808, end: 20220808
  8. BESPONSA [Suspect]
     Active Substance: INOTUZUMAB OZOGAMICIN
     Dosage: 0.5 MG/M2, 1X/DAY, CYCLE 3
     Route: 041
     Dates: start: 20220815, end: 20220815
  9. BESPONSA [Suspect]
     Active Substance: INOTUZUMAB OZOGAMICIN
     Dosage: 0.5 MG/M2, 1X/DAY, CYCLE 3
     Route: 041
     Dates: start: 20220822, end: 20220822
  10. BESPONSA [Suspect]
     Active Substance: INOTUZUMAB OZOGAMICIN
     Dosage: 0.5 MG/M2, 1X/DAY, CYCLE 4
     Route: 041
     Dates: start: 20220920, end: 20220920
  11. BESPONSA [Suspect]
     Active Substance: INOTUZUMAB OZOGAMICIN
     Dosage: 0.5 MG/M2, 1X/DAY, CYCLE 4
     Route: 041
     Dates: start: 20220926, end: 20220926
  12. BESPONSA [Suspect]
     Active Substance: INOTUZUMAB OZOGAMICIN
     Dosage: 0.5 MG/M2, 1X/DAY, CYCLE 4
     Route: 041
     Dates: start: 20221003, end: 20221003
  13. BESPONSA [Suspect]
     Active Substance: INOTUZUMAB OZOGAMICIN
     Dosage: 0.5 MG/M2, 1X/DAY, CYCLE 5
     Route: 041
     Dates: start: 20221214, end: 20221214
  14. HEMOPORISON [Concomitant]
     Indication: Haemorrhoids
     Dosage: 2 G, 1X/DAY
     Dates: start: 20220322

REACTIONS (6)
  - Pneumocystis jirovecii pneumonia [Unknown]
  - Systemic mycosis [Unknown]
  - Haematotoxicity [Recovered/Resolved]
  - Neoplasm progression [Unknown]
  - Cholelithiasis [Unknown]
  - Urinary tract infection [Unknown]

NARRATIVE: CASE EVENT DATE: 20220501
